FAERS Safety Report 12601696 (Version 1)
Quarter: 2016Q3

REPORT INFORMATION
  Report Type: Spontaneous
  Country: US (occurrence: None)
  Receive Date: 20160727
  Receipt Date: 20160727
  Transmission Date: 20161109
  Serious: Yes (Other)
  Sender: FDA-Public Use
  Company Number: None

PATIENT
  Age: 16 Year
  Sex: Female
  Weight: 54.43 kg

DRUGS (1)
  1. ZONISAMIDE 100MG [Suspect]
     Active Substance: ZONISAMIDE
     Indication: CONVULSION PROPHYLAXIS
     Route: 048
     Dates: start: 20160724

REACTIONS (3)
  - Insomnia [None]
  - Hallucination [None]
  - Nightmare [None]

NARRATIVE: CASE EVENT DATE: 20160724
